FAERS Safety Report 12273180 (Version 1)
Quarter: 2016Q2

REPORT INFORMATION
  Report Type: Spontaneous
  Country: US (occurrence: US)
  Receive Date: 20160415
  Receipt Date: 20160415
  Transmission Date: 20160815
  Serious: Yes (Death, Hospitalization)
  Sender: FDA-Public Use
  Company Number: US-JNJFOC-20160409920

PATIENT
  Age: 79 Year
  Sex: Male
  Weight: 81.33 kg

DRUGS (9)
  1. KEPPRA [Concomitant]
     Active Substance: LEVETIRACETAM
     Route: 065
  2. HYDRALAZINE [Concomitant]
     Active Substance: HYDRALAZINE HYDROCHLORIDE
     Route: 065
  3. SODIUM CHLORIDE. [Concomitant]
     Active Substance: SODIUM CHLORIDE
     Route: 065
  4. SENOKOT-S [Concomitant]
     Active Substance: DOCUSATE SODIUM\SENNOSIDES
     Route: 065
  5. LORATADINE. [Concomitant]
     Active Substance: LORATADINE
     Route: 065
  6. LABETALOL [Concomitant]
     Active Substance: LABETALOL\LABETALOL HYDROCHLORIDE
     Route: 065
  7. XARELTO [Suspect]
     Active Substance: RIVAROXABAN
     Indication: CEREBROVASCULAR ACCIDENT PROPHYLAXIS
     Route: 048
     Dates: start: 20151128, end: 20160214
  8. XARELTO [Suspect]
     Active Substance: RIVAROXABAN
     Indication: ATRIAL FIBRILLATION
     Route: 048
     Dates: start: 20151128, end: 20160214
  9. NICARDIPINE [Concomitant]
     Active Substance: NICARDIPINE
     Route: 065

REACTIONS (2)
  - Subarachnoid haemorrhage [Fatal]
  - Inappropriate antidiuretic hormone secretion [Fatal]

NARRATIVE: CASE EVENT DATE: 20160215
